FAERS Safety Report 9433863 (Version 1)
Quarter: 2013Q3

REPORT INFORMATION
  Report Type: Spontaneous
  Country: US (occurrence: US)
  Receive Date: 20130731
  Receipt Date: 20130731
  Transmission Date: 20140515
  Serious: No
  Sender: FDA-Public Use
  Company Number: US-ASTRAZENECA-2013SE54928

PATIENT
  Sex: 0

DRUGS (2)
  1. SEROQUEL [Suspect]
     Route: 048
  2. TRILEPTAL [Interacting]
     Route: 065

REACTIONS (2)
  - Drug interaction [Unknown]
  - Drug level changed [Unknown]
